FAERS Safety Report 16156642 (Version 1)
Quarter: 2019Q2

REPORT INFORMATION
  Report Type: Spontaneous
  Country: US (occurrence: US)
  Receive Date: 20190228
  Receipt Date: 20190228
  Transmission Date: 20190711
  Serious: Yes (Other)
  Sender: FDA-Public Use
  Company Number: None

PATIENT
  Sex: Female
  Weight: 54.43 kg

DRUGS (1)
  1. PROLIA [Suspect]
     Active Substance: DENOSUMAB
     Indication: OSTEOPOROSIS
     Route: 058
     Dates: start: 20181218

REACTIONS (16)
  - Fatigue [None]
  - Cystitis [None]
  - Incontinence [None]
  - Myalgia [None]
  - Pain in extremity [None]
  - Pelvic pain [None]
  - Sciatica [None]
  - Bone pain [None]
  - Back pain [None]
  - Oedema [None]
  - Weight decreased [None]
  - Muscle spasms [None]
  - Loss of personal independence in daily activities [None]
  - Pollakiuria [None]
  - Insomnia [None]
  - Crying [None]
